FAERS Safety Report 5584569-X (Version None)
Quarter: 2008Q1

REPORT INFORMATION
  Report Type: 
  Country: None (occurrence: None)
  Receive Date: 20080108
  Receipt Date: 20071231
  Transmission Date: 20080703
  Serious: Yes (Death, Hospitalization)
  Sender: FDA-Public Use
  Company Number: US-SANOFI-SYNTHELABO-F01200701637

PATIENT
  Sex: Female

DRUGS (22)
  1. VITAMINS NOS [Concomitant]
     Dosage: UNK
  2. GLUCOSAMINE SULFATE/ CHONDROITIN [Concomitant]
     Dosage: UNK
  3. YUCCA [Concomitant]
     Dosage: UNK
  4. BENADRYL [Concomitant]
     Dosage: UNK
  5. TIMOLOL MALEATE [Concomitant]
     Dosage: UNK
  6. XALATAN [Concomitant]
     Dosage: UNK
  7. LOFIBRA [Concomitant]
     Dosage: UNK
  8. CAPTOPRIL [Concomitant]
     Dosage: UNK
  9. FERROUS SULFATE TAB [Concomitant]
     Dosage: UNK
  10. FUROSEMIDE [Concomitant]
     Dosage: UNK
  11. GLYBURIDE [Concomitant]
     Dosage: UNK
  12. ACIPHEX [Concomitant]
     Dosage: UNK
  13. AVANDIA [Concomitant]
     Dosage: UNK
  14. TYLENOL (CAPLET) [Concomitant]
     Dosage: UNK
  15. FISH OIL [Concomitant]
     Dosage: UNK
  16. LORTAB [Concomitant]
     Dosage: UNK
  17. MOM [Concomitant]
     Dosage: UNK
  18. PROCHLORPERAZINE MALEATE [Concomitant]
     Dosage: UNK
  19. BYETTA [Concomitant]
     Dosage: UNK
  20. BEVACIZUMAB [Suspect]
     Route: 042
     Dates: start: 20071029, end: 20071029
  21. CAPECITABINE [Suspect]
     Dosage: BID FOR 14 DAYS
     Route: 048
     Dates: start: 20071029, end: 20071111
  22. OXALIPLATIN [Suspect]
     Indication: COLORECTAL CANCER METASTATIC
     Route: 042
     Dates: start: 20071029, end: 20071029

REACTIONS (4)
  - ABDOMINAL PAIN [None]
  - HAEMATEMESIS [None]
  - MUCOSAL INFLAMMATION [None]
  - UPPER GASTROINTESTINAL HAEMORRHAGE [None]
